FAERS Safety Report 10248231 (Version 2)
Quarter: 2014Q2

REPORT INFORMATION
  Report Type: Spontaneous
  Country: IT (occurrence: IT)
  Receive Date: 20140620
  Receipt Date: 20140620
  Transmission Date: 20141212
  Serious: Yes (Other)
  Sender: FDA-Public Use
  Company Number: IT-AMGEN-ITASP2014037461

PATIENT
  Age: 24 Year
  Sex: Female

DRUGS (1)
  1. ENBREL [Suspect]
     Indication: RHEUMATOID ARTHRITIS
     Dosage: 2 DF, WEEKLY
     Route: 058
     Dates: start: 20140201

REACTIONS (3)
  - Peripheral swelling [Recovered/Resolved]
  - Injection site erythema [Recovered/Resolved]
  - Injection site vesicles [Recovered/Resolved]
